FAERS Safety Report 8484032-2 (Version None)
Quarter: 2012Q2

REPORT INFORMATION
  Report Type: 
  Country: None (occurrence: None)
  Receive Date: 20120402
  Receipt Date: 20101118
  Transmission Date: 20120825
  Serious: Yes (Other)
  Sender: FDA-Public Use
  Company Number: A-US2010-41840

PATIENT
  Age: 56 Year
  Sex: Male

DRUGS (3)
  1. VENTAVIS [Suspect]
     Indication: PULMONARY ARTERIAL HYPERTENSION
     Dosage: , RESPIRATORY
     Route: 055
     Dates: start: 20101015
  2. TRACLEER (BOSENTAN) TABLET , ORAL [Concomitant]
  3. OXYGEN (OXYGEN) [Concomitant]

REACTIONS (10)
  - NASAL CONGESTION [None]
  - HEADACHE [None]
  - OEDEMA PERIPHERAL [None]
  - NO THERAPEUTIC RESPONSE [None]
  - LOSS OF CONSCIOUSNESS [None]
  - WEIGHT INCREASED [None]
  - COUGH [None]
  - INSOMNIA [None]
  - SYNCOPE [None]
  - ERYTHEMA [None]
